FAERS Safety Report 17658019 (Version 1)
Quarter: 2020Q2

REPORT INFORMATION
  Report Type: Report from Study
  Country: FR (occurrence: FR)
  Receive Date: 20200411
  Receipt Date: 20200411
  Transmission Date: 20200713
  Serious: Yes (Other)
  Sender: FDA-Public Use
  Company Number: FR-ROCHE-2583236

PATIENT
  Age: 48 Year
  Sex: Male

DRUGS (4)
  1. VALACICLOVIR [Suspect]
     Active Substance: VALACYCLOVIR HYDROCHLORIDE
     Indication: VARICELLA ZOSTER VIRUS INFECTION
     Route: 048
  2. GANCICLOVIR. [Suspect]
     Active Substance: GANCICLOVIR
     Indication: VARICELLA ZOSTER VIRUS INFECTION
     Dosage: 2/1 WEEK(S) (2 INJECTIONS, 2000 MICROG/0.05 ML
     Route: 031
  3. ACETYLSALICYLIC ACID [Concomitant]
     Active Substance: ASPIRIN
     Indication: ANTIPLATELET THERAPY
     Route: 065
  4. ACICLOVIR [Suspect]
     Active Substance: ACYCLOVIR
     Indication: VARICELLA ZOSTER VIRUS INFECTION
     Route: 042

REACTIONS (4)
  - Macular oedema [Unknown]
  - Intentional product use issue [Unknown]
  - Macular fibrosis [Unknown]
  - Off label use [Unknown]
